FAERS Safety Report 4325874-4 (Version None)
Quarter: 2004Q1

REPORT INFORMATION
  Report Type: 
  Country: None (occurrence: None)
  Receive Date: 20040324
  Receipt Date: 20040308
  Transmission Date: 20041129
  Serious: Yes (Other)
  Sender: FDA-Public Use
  Company Number: USA040361337

PATIENT
  Age: 79 Year
  Sex: Female

DRUGS (3)
  1. FORTEO [Suspect]
     Indication: OSTEOPOROSIS
     Dosage: 20 UG/1 DAY
     Dates: start: 20030127, end: 20040301
  2. FOSAMAX [Concomitant]
  3. ACIPHEX [Concomitant]

REACTIONS (2)
  - ERYTHEMA NODOSUM [None]
  - PANCREATIC CARCINOMA [None]
